FAERS Safety Report 25227950 (Version 3)
Quarter: 2025Q3

REPORT INFORMATION
  Report Type: Spontaneous
  Country: JP (occurrence: JP)
  Receive Date: 20250423
  Receipt Date: 20250809
  Transmission Date: 20251020
  Serious: Yes (Hospitalization, Other)
  Sender: ALEXION PHARMACEUTICALS
  Company Number: JP-ASTRAZENECA-250037369_063010_P_1

PATIENT
  Age: 64 Year
  Sex: Male

DRUGS (37)
  1. DAPAGLIFLOZIN [Suspect]
     Active Substance: DAPAGLIFLOZIN
     Indication: Cardiac failure chronic
     Dosage: IN THE MORNING
  2. DAPAGLIFLOZIN [Suspect]
     Active Substance: DAPAGLIFLOZIN
     Dosage: IN THE MORNING
  3. DAPAGLIFLOZIN [Suspect]
     Active Substance: DAPAGLIFLOZIN
     Dosage: IN THE MORNING
  4. BISOPROLOL FUMARATE [Concomitant]
     Active Substance: BISOPROLOL FUMARATE
     Dosage: IN THE MORNING
  5. BISOPROLOL FUMARATE [Concomitant]
     Active Substance: BISOPROLOL FUMARATE
     Dosage: IN THE MORNING
  6. BISOPROLOL FUMARATE [Concomitant]
     Active Substance: BISOPROLOL FUMARATE
     Dosage: IN THE MORNING
  7. SPIRONOLACTONE [Concomitant]
     Active Substance: SPIRONOLACTONE
     Dosage: IN THE MORNING
  8. SPIRONOLACTONE [Concomitant]
     Active Substance: SPIRONOLACTONE
     Dosage: IN THE MORNING
  9. SPIRONOLACTONE [Concomitant]
     Active Substance: SPIRONOLACTONE
     Dosage: IN THE MORNING
  10. VALSARTAN [Concomitant]
     Active Substance: VALSARTAN
     Dosage: IN THE MORNING
  11. VALSARTAN [Concomitant]
     Active Substance: VALSARTAN
     Dosage: IN THE MORNING
  12. VALSARTAN [Concomitant]
     Active Substance: VALSARTAN
     Dosage: IN THE MORNING
  13. AZOSEMIDE [Concomitant]
     Active Substance: AZOSEMIDE
     Dosage: IN THE MORNING
  14. AZOSEMIDE [Concomitant]
     Active Substance: AZOSEMIDE
     Dosage: IN THE MORNING
  15. AZOSEMIDE [Concomitant]
     Active Substance: AZOSEMIDE
     Dosage: IN THE MORNING
  16. FUROSEMIDE [Concomitant]
     Active Substance: FUROSEMIDE
     Dosage: IN THE MORNING
  17. FUROSEMIDE [Concomitant]
     Active Substance: FUROSEMIDE
     Dosage: IN THE MORNING
  18. FUROSEMIDE [Concomitant]
     Active Substance: FUROSEMIDE
     Dosage: IN THE MORNING
  19. FUROSEMIDE [Concomitant]
     Active Substance: FUROSEMIDE
     Dosage: IN THE MORNING
  20. FUROSEMIDE [Concomitant]
     Active Substance: FUROSEMIDE
     Dosage: IN THE MORNING
  21. FUROSEMIDE [Concomitant]
     Active Substance: FUROSEMIDE
     Dosage: IN THE MORNING
  22. TOLVAPTAN [Concomitant]
     Active Substance: TOLVAPTAN
     Dosage: IN THE MORNING
  23. TOLVAPTAN [Concomitant]
     Active Substance: TOLVAPTAN
     Dosage: IN THE MORNING
  24. TOLVAPTAN [Concomitant]
     Active Substance: TOLVAPTAN
     Dosage: IN THE MORNING
  25. EDOXABAN TOSYLATE [Concomitant]
     Active Substance: EDOXABAN TOSYLATE
     Dosage: IN THE MORNING
  26. LEVOTHYROXINE [Concomitant]
     Active Substance: LEVOTHYROXINE
     Dosage: IN THE MORNING
  27. LEVOTHYROXINE [Concomitant]
     Active Substance: LEVOTHYROXINE
     Dosage: IN THE MORNING
  28. POTASSIUM CHLORIDE [Concomitant]
     Active Substance: POTASSIUM CHLORIDE
     Dosage: IN THE MORNING
  29. POTASSIUM CHLORIDE [Concomitant]
     Active Substance: POTASSIUM CHLORIDE
     Dosage: IN THE MORNING
  30. POTASSIUM CHLORIDE [Concomitant]
     Active Substance: POTASSIUM CHLORIDE
     Dosage: IN THE MORNING
  31. VONOPRAZAN FUMARATE [Concomitant]
     Active Substance: VONOPRAZAN FUMARATE
     Dosage: IN THE MORNING
  32. VONOPRAZAN FUMARATE [Concomitant]
     Active Substance: VONOPRAZAN FUMARATE
     Dosage: IN THE MORNING
  33. VONOPRAZAN FUMARATE [Concomitant]
     Active Substance: VONOPRAZAN FUMARATE
     Dosage: IN THE MORNING
  34. BEPRIDIL [Concomitant]
     Active Substance: BEPRIDIL
     Route: 065
  35. EDOXABAN [Concomitant]
     Active Substance: EDOXABAN
     Dosage: IN THE MORNING
  36. LEVOTHYROXINE SODIUM [Concomitant]
     Active Substance: LEVOTHYROXINE SODIUM
     Dosage: IN THE MORNING
  37. LEVOTHYROXINE SODIUM [Concomitant]
     Active Substance: LEVOTHYROXINE SODIUM
     Dosage: IN THE MORNING

REACTIONS (3)
  - Cardiac failure chronic [Unknown]
  - Renal impairment [Unknown]
  - Weight increased [Unknown]
